FAERS Safety Report 8832467 (Version 1)
Quarter: 2012Q4

REPORT INFORMATION
  Report Type: Spontaneous
  Country: US (occurrence: None)
  Receive Date: 20121005
  Receipt Date: 20121005
  Transmission Date: 20130627
  Serious: No
  Sender: FDA-Public Use
  Company Number: None

PATIENT
  Age: 82 Year
  Sex: Female
  Weight: 74.3 kg

DRUGS (1)
  1. WARFARIN [Suspect]
     Indication: ATRIAL FIBRILLATION
     Dosage: MG EVERY DAY PO
     Route: 048
     Dates: start: 20110906, end: 20120912

REACTIONS (6)
  - Fall [None]
  - Subdural haemorrhage [None]
  - Subdural haematoma [None]
  - Head injury [None]
  - Joint injury [None]
  - Subgaleal haematoma [None]
